FAERS Safety Report 23122761 (Version 3)
Quarter: 2024Q2

REPORT INFORMATION
  Report Type: Spontaneous
  Country: US (occurrence: US)
  Receive Date: 20231030
  Receipt Date: 20240408
  Transmission Date: 20240716
  Serious: No
  Sender: FDA-Public Use
  Company Number: US-UCBSA-2023034272

PATIENT
  Age: 37 Year
  Sex: Female

DRUGS (15)
  1. BRIVARACETAM [Suspect]
     Active Substance: BRIVARACETAM
     Indication: Epilepsy
     Dosage: UNK, DRIP
  2. LACOSAMIDE [Suspect]
     Active Substance: LACOSAMIDE
     Indication: Epilepsy
     Dosage: UNK, DRIP
  3. LEVETIRACETAM [Suspect]
     Active Substance: LEVETIRACETAM
     Indication: Epilepsy
     Dosage: UNK
  4. PROPOFOL [Suspect]
     Active Substance: PROPOFOL
     Indication: Epilepsy
     Dosage: UNK
  5. DEXMEDETOMIDINE [Suspect]
     Active Substance: DEXMEDETOMIDINE
     Indication: Epilepsy
     Dosage: UNK
  6. FOSPHENYTOIN [Suspect]
     Active Substance: FOSPHENYTOIN
     Indication: Epilepsy
     Dosage: UNK
  7. CENOBAMATE [Suspect]
     Active Substance: CENOBAMATE
     Indication: Epilepsy
     Dosage: UNK, DRIP
  8. LEVOCARNITINE [Suspect]
     Active Substance: LEVOCARNITINE
     Indication: Epilepsy
     Dosage: UNK, DRIP
  9. PERAMPANEL [Suspect]
     Active Substance: PERAMPANEL
     Indication: Epilepsy
     Dosage: UNK, DRIP
  10. ZONISAMIDE [Suspect]
     Active Substance: ZONISAMIDE
     Indication: Epilepsy
     Dosage: UNK, DRIP
  11. KETAMINE [Suspect]
     Active Substance: KETAMINE
     Indication: Epilepsy
     Dosage: UNK, DRIP
  12. PENTOBARBITAL [Suspect]
     Active Substance: PENTOBARBITAL
     Indication: Epilepsy
     Dosage: UNK, DRIPS
  13. METHYLPREDNISOLONE [Concomitant]
     Active Substance: METHYLPREDNISOLONE
     Indication: Encephalitis autoimmune
     Dosage: UNK
  14. RITUXIMAB [Concomitant]
     Active Substance: RITUXIMAB
     Indication: Encephalitis autoimmune
     Dosage: UNK
  15. TOCILIZUMAB [Concomitant]
     Active Substance: TOCILIZUMAB
     Indication: Encephalitis autoimmune
     Dosage: UNK

REACTIONS (1)
  - Multiple-drug resistance [Unknown]
